FAERS Safety Report 9765971 (Version 3)
Quarter: 2014Q1

REPORT INFORMATION
  Report Type: Spontaneous
  Country: US (occurrence: US)
  Receive Date: 20131217
  Receipt Date: 20140227
  Transmission Date: 20141002
  Serious: No
  Sender: FDA-Public Use
  Company Number: US-PFIZER INC-2013357906

PATIENT
  Age: 48 Year
  Sex: Female

DRUGS (2)
  1. PROTONIX [Suspect]
     Dosage: UNK
     Dates: end: 2013
  2. ZANTAC [Concomitant]
     Dosage: UNK

REACTIONS (4)
  - Diarrhoea [Unknown]
  - Abdominal pain [Unknown]
  - Abdominal distension [Unknown]
  - Gastrooesophageal reflux disease [Unknown]
